FAERS Safety Report 25858916 (Version 1)
Quarter: 2025Q3

REPORT INFORMATION
  Report Type: Spontaneous
  Country: KR (occurrence: KR)
  Receive Date: 20250929
  Receipt Date: 20250929
  Transmission Date: 20251021
  Serious: Yes (Hospitalization)
  Sender: MYLAN
  Company Number: KR-MYLANLABS-2025M1081660

PATIENT
  Sex: Male
  Weight: 63 kg

DRUGS (2)
  1. LYRICA [Suspect]
     Active Substance: PREGABALIN
     Indication: Visual impairment
     Dosage: 1 DOSAGE FORM, BID
     Dates: start: 20160323, end: 20160330
  2. AFLOQUALONE [Suspect]
     Active Substance: AFLOQUALONE
     Indication: Visual impairment
     Dosage: 1 DOSAGE FORM, BID
     Dates: start: 20160323, end: 20160330

REACTIONS (6)
  - Epidermolysis [Recovered/Resolved]
  - Toxic skin eruption [Recovered/Resolved]
  - Urticaria [Recovered/Resolved]
  - Pruritus [Recovered/Resolved]
  - Rash maculo-papular [Recovered/Resolved]
  - Product use in unapproved indication [Unknown]

NARRATIVE: CASE EVENT DATE: 20160323
